FAERS Safety Report 4284795-6 (Version None)
Quarter: 2004Q1

REPORT INFORMATION
  Report Type: 
  Country: None (occurrence: None)
  Receive Date: 20040202
  Receipt Date: 20040119
  Transmission Date: 20041129
  Serious: Yes (Hospitalization)
  Sender: FDA-Public Use
  Company Number: 04P-056-0247918-00

PATIENT
  Age: 53 Year
  Sex: Female

DRUGS (1)
  1. DEPAKOTE [Suspect]
     Indication: SUICIDE ATTEMPT
     Dosage: 30 GM, ONCE, PER ORAL
     Route: 048
     Dates: start: 20031228, end: 20031228

REACTIONS (13)
  - BLOOD CREATINE INCREASED [None]
  - BRADYCARDIA [None]
  - CIRCULATORY COLLAPSE [None]
  - COMA [None]
  - DRUG LEVEL INCREASED [None]
  - HEPATIC ENZYME INCREASED [None]
  - HYPERAMMONAEMIA [None]
  - INTENTIONAL OVERDOSE [None]
  - LEUKOPENIA [None]
  - MYDRIASIS [None]
  - POLYURIA [None]
  - SUICIDE ATTEMPT [None]
  - THROMBOCYTOPENIA [None]
